FAERS Safety Report 6027652-7 (Version None)
Quarter: 2009Q1

REPORT INFORMATION
  Report Type: 
  Country: None (occurrence: None)
  Receive Date: 20090105
  Receipt Date: 20081222
  Transmission Date: 20090719
  Serious: Yes (Hospitalization, Other)
  Sender: FDA-Public Use
  Company Number: US-CELGENEUS-163-21880-08090145

PATIENT
  Sex: Female

DRUGS (2)
  1. REVLIMID [Suspect]
     Indication: MULTIPLE MYELOMA
     Route: 048
     Dates: start: 20080219, end: 20080301
  2. REVLIMID [Suspect]
     Route: 048
     Dates: start: 20060718, end: 20080201

REACTIONS (2)
  - ANAEMIA [None]
  - UPPER LIMB FRACTURE [None]
